FAERS Safety Report 7475310-4 (Version None)
Quarter: 2011Q1

REPORT INFORMATION
  Report Type: 
  Country: None (occurrence: None)
  Receive Date: 20110303
  Receipt Date: 20110131
  Transmission Date: 20110831
  Serious: No
  Sender: FDA-Public Use
  Company Number: 163-22393-11020661

PATIENT
  Sex: Male

DRUGS (1)
  1. ISTODAX [Suspect]
     Indication: MYCOSIS FUNGOIDES
     Dosage: 14 MG/M2
     Dates: start: 20110117

REACTIONS (1)
  - SWOLLEN TONGUE [None]
